FAERS Safety Report 7217731-0 (Version None)
Quarter: 2011Q1

REPORT INFORMATION
  Report Type: 
  Country: None (occurrence: None)
  Receive Date: 20110110
  Receipt Date: 20101230
  Transmission Date: 20110831
  Serious: Yes (Hospitalization)
  Sender: FDA-Public Use
  Company Number: US-JNJFOC-20110100524

PATIENT
  Sex: Male
  Weight: 11.79 kg

DRUGS (3)
  1. CHILDREN'S TYLENOL SUSPENSION [Suspect]
     Route: 048
  2. IBUPROFEN [Suspect]
     Indication: VIRAL INFECTION
     Dosage: 3ML EVERY 4 TO 6 HOURS AS INDICATED ON THE BOX.
     Route: 048
  3. CHILDREN'S TYLENOL SUSPENSION [Suspect]
     Indication: PYREXIA
     Route: 048

REACTIONS (2)
  - FOREIGN BODY [None]
  - DRUG INEFFECTIVE [None]
